FAERS Safety Report 15077558 (Version 5)
Quarter: 2024Q1

REPORT INFORMATION
  Report Type: Spontaneous
  Country: DE (occurrence: DE)
  Receive Date: 20180627
  Receipt Date: 20240219
  Transmission Date: 20240409
  Serious: Yes (Hospitalization, Other)
  Sender: FDA-Public Use
  Company Number: DE-KRKA-DE2018K09234LIT

PATIENT
  Age: 48 Year
  Sex: Male
  Weight: 77 kg

DRUGS (9)
  1. ENANTONE LP [Suspect]
     Active Substance: LEUPROLIDE ACETATE
     Indication: Product used for unknown indication
     Route: 065
  2. ENANTONE LP [Suspect]
     Active Substance: LEUPROLIDE ACETATE
  3. CALCIUM [Suspect]
     Active Substance: CALCIUM
     Indication: Osteoporosis
     Dosage: UNK
     Route: 065
  4. DENOSUMAB [Suspect]
     Active Substance: DENOSUMAB
     Indication: Product used for unknown indication
     Dosage: UNK
     Route: 065
  5. CYPROTERONE ACETATE [Suspect]
     Active Substance: CYPROTERONE ACETATE
     Indication: Paraphilia
     Dosage: 300 MILLIGRAM, Q2WEEKS
     Route: 065
     Dates: start: 2000, end: 2002
  6. CYPROTERONE [Suspect]
     Active Substance: CYPROTERONE
     Indication: Paraphilia
     Dosage: 300 MG, Q2WEEKS
     Route: 065
  7. TRIPTORELIN [Suspect]
     Active Substance: TRIPTORELIN
     Indication: Product used for unknown indication
     Dosage: UNK
     Route: 065
     Dates: start: 2002, end: 2012
  8. CHOLECALCIFEROL [Suspect]
     Active Substance: CHOLECALCIFEROL
     Indication: Osteoporosis
     Dosage: UNK
     Route: 065
  9. TRIPTORELIN PAMOATE [Suspect]
     Active Substance: TRIPTORELIN PAMOATE
     Indication: Paraphilia
     Dosage: 11.25 MILLIGRAM, Q3MONTHS
     Route: 030
     Dates: start: 2011

REACTIONS (7)
  - Calculus urinary [Recovered/Resolved]
  - Osteopenia [Unknown]
  - Renal colic [Unknown]
  - Osteoporosis [Unknown]
  - Hot flush [Unknown]
  - Hyperhidrosis [Unknown]
  - Nephrolithiasis [Unknown]

NARRATIVE: CASE EVENT DATE: 20140101
